FAERS Safety Report 6229693-3 (Version None)
Quarter: 2009Q2

REPORT INFORMATION
  Report Type: 
  Country: None (occurrence: None)
  Receive Date: 20090609
  Receipt Date: 20090504
  Transmission Date: 20091009
  Serious: Yes (Hospitalization)
  Sender: FDA-Public Use
  Company Number: 000770

PATIENT
  Sex: Male
  Weight: 74.5 kg

DRUGS (6)
  1. ROTIGOTINE [Suspect]
     Indication: TREMOR
     Dosage: TRANSDERMAL
     Route: 062
     Dates: start: 20070101, end: 20080501
  2. CARBIDOPA AND LEVODOPA [Concomitant]
  3. LODOSYN [Concomitant]
  4. ZOCOR [Concomitant]
  5. MULTIVITAMINS /00831701/ [Concomitant]
  6. CENOVIS MEGA CALCIUM PLUS D [Concomitant]

REACTIONS (1)
  - ARRHYTHMIA [None]
